FAERS Safety Report 14145928 (Version 1)
Quarter: 2017Q4

REPORT INFORMATION
  Report Type: Spontaneous
  Country: GB (occurrence: GB)
  Receive Date: 20171031
  Receipt Date: 20171031
  Transmission Date: 20180321
  Serious: Yes (Life-Threatening, Hospitalization)
  Sender: FDA-Public Use
  Company Number: GB-VIIV HEALTHCARE LIMITED-GB2017GSK165909

PATIENT
  Age: 26 Year
  Sex: Female

DRUGS (3)
  1. KIVEXA [Suspect]
     Active Substance: ABACAVIR SULFATE\LAMIVUDINE
     Indication: PRODUCT USED FOR UNKNOWN INDICATION
  2. RILPIVIRINE [Suspect]
     Active Substance: RILPIVIRINE
     Indication: PRODUCT USED FOR UNKNOWN INDICATION
  3. EFAVIRENZ. [Suspect]
     Active Substance: EFAVIRENZ
     Indication: PRODUCT USED FOR UNKNOWN INDICATION

REACTIONS (5)
  - Vomiting [Recovered/Resolved]
  - Hypotension [Recovered/Resolved]
  - Drug hypersensitivity [Recovered/Resolved]
  - Hepatic enzyme increased [Unknown]
  - Rash [Recovered/Resolved]
